FAERS Safety Report 9627505 (Version 2)
Quarter: 2013Q4

REPORT INFORMATION
  Report Type: Not Available
  Country: US (occurrence: US)
  Receive Date: 20131016
  Receipt Date: 20131016
  Transmission Date: 20140711
  Serious: Yes (Other)
  Sender: FDA-Public Use
  Company Number: US-LUNDBECK-DKLU1088983

PATIENT
  Sex: Male

DRUGS (8)
  1. SABRIL (TABLET) [Suspect]
     Indication: TUBEROUS SCLEROSIS
     Route: 048
     Dates: start: 20110502
  2. SABRIL (TABLET) [Suspect]
     Indication: PARTIAL SEIZURES
     Route: 048
     Dates: start: 20110302
  3. SABRIL (TABLET) [Suspect]
     Route: 048
     Dates: start: 20110302
  4. SABRIL (TABLET) [Suspect]
     Route: 048
     Dates: start: 20110302
  5. LAMICTAL [Concomitant]
     Indication: PRODUCT USED FOR UNKNOWN INDICATION
  6. TRILEPTAL [Concomitant]
     Indication: PRODUCT USED FOR UNKNOWN INDICATION
  7. DILANTIN [Concomitant]
     Indication: PRODUCT USED FOR UNKNOWN INDICATION
  8. DEPAKOTE [Concomitant]
     Indication: PRODUCT USED FOR UNKNOWN INDICATION

REACTIONS (1)
  - Convulsion [Unknown]
